FAERS Safety Report 9723209 (Version 2)
Quarter: 2013Q4

REPORT INFORMATION
  Report Type: Spontaneous
  Country: IL (occurrence: IL)
  Receive Date: 20131202
  Receipt Date: 20131220
  Transmission Date: 20140711
  Serious: Yes (Hospitalization)
  Sender: FDA-Public Use
  Company Number: IL-NOVOPROD-393533

PATIENT
  Age: 62 Year
  Sex: Male
  Weight: 105 kg

DRUGS (2)
  1. VICTOZA [Suspect]
     Indication: TYPE 2 DIABETES MELLITUS
     Dosage: 1.8 MG, QD
     Route: 065
     Dates: start: 2012, end: 2012
  2. VICTOZA [Suspect]
     Dosage: UNK
     Route: 065
     Dates: start: 2012

REACTIONS (1)
  - Decreased appetite [Recovered/Resolved]
